FAERS Safety Report 6562898-0 (Version None)
Quarter: 2010Q1

REPORT INFORMATION
  Report Type: 
  Country: None (occurrence: None)
  Receive Date: 20100130
  Receipt Date: 20091123
  Transmission Date: 20100710
  Serious: No
  Sender: FDA-Public Use
  Company Number: US-ABBOTT-09P-163-0611095-00

PATIENT
  Sex: Female
  Weight: 24.97 kg

DRUGS (3)
  1. HUMIRA [Suspect]
     Indication: CROHN'S DISEASE
     Route: 058
     Dates: start: 20070124, end: 20070201
  2. HUMIRA [Suspect]
     Indication: CROHN'S DISEASE
     Route: 058
     Dates: start: 20070201, end: 20091001
  3. PENTASA [Concomitant]
     Indication: CROHN'S DISEASE
     Route: 061

REACTIONS (7)
  - CONSTIPATION [None]
  - INFLUENZA [None]
  - INJECTION SITE PAIN [None]
  - PURULENT DISCHARGE [None]
  - PYREXIA [None]
  - SKIN HAEMORRHAGE [None]
  - SKIN INFECTION [None]
